FAERS Safety Report 11590620 (Version 1)
Quarter: 2015Q4

REPORT INFORMATION
  Report Type: Spontaneous
  Country: US (occurrence: US)
  Receive Date: 20151002
  Receipt Date: 20151002
  Transmission Date: 20160304
  Serious: No
  Sender: FDA-Public Use
  Company Number: US-009507513-1509USA014659

PATIENT
  Age: 22 Year
  Sex: Female
  Weight: 108.39 kg

DRUGS (1)
  1. IMPLANON [Suspect]
     Active Substance: ETONOGESTREL
     Dosage: UNK
     Route: 059
     Dates: start: 20120416, end: 20150331

REACTIONS (1)
  - Avoidant personality disorder [Unknown]

NARRATIVE: CASE EVENT DATE: 20130411
